FAERS Safety Report 5946121-3 (Version None)
Quarter: 2008Q4

REPORT INFORMATION
  Report Type: 
  Country: None (occurrence: None)
  Receive Date: 20081110
  Receipt Date: 20081103
  Transmission Date: 20090506
  Serious: Yes (Life-Threatening)
  Sender: FDA-Public Use
  Company Number: DE-BAYER-200829225GPV

PATIENT
  Age: 25 Year
  Sex: Female
  Weight: 57 kg

DRUGS (1)
  1. MIRENA [Suspect]
     Indication: CONTRACEPTION
     Route: 015
     Dates: start: 20060101, end: 20080201

REACTIONS (7)
  - ANOREXIA [None]
  - DEPRESSION [None]
  - DIET REFUSAL [None]
  - MOOD SWINGS [None]
  - NIGHT SWEATS [None]
  - SUICIDAL IDEATION [None]
  - WEIGHT DECREASED [None]
